FAERS Safety Report 12074455 (Version 2)
Quarter: 2016Q1

REPORT INFORMATION
  Report Type: Report from Study
  Country: CA (occurrence: CA)
  Receive Date: 20160212
  Receipt Date: 20160225
  Transmission Date: 20160526
  Serious: Yes (Other)
  Sender: FDA-Public Use
  Company Number: CA-ALEXION PHARMACEUTICALS INC-A201600771

PATIENT
  Sex: Male
  Weight: 95.24 kg

DRUGS (12)
  1. SOLIRIS [Suspect]
     Active Substance: ECULIZUMAB
     Dosage: 900 MG, Q2W
     Route: 042
     Dates: start: 20130509
  2. ATIVAN [Concomitant]
     Active Substance: LORAZEPAM
     Indication: SEDATIVE THERAPY
     Dosage: 1 MG, HS, PRN
     Route: 048
     Dates: start: 20130402
  3. SERAX                              /00040901/ [Concomitant]
     Indication: SLEEP DISORDER
     Dosage: 15 MG, HS, PRN
     Route: 048
     Dates: start: 20130509
  4. PANTOLOC                           /01263204/ [Concomitant]
     Active Substance: PANTOPRAZOLE SODIUM
     Indication: PROPHYLAXIS
     Dosage: 40 MG, 1CO, QD
     Route: 048
     Dates: start: 20130509
  5. EXJADE [Concomitant]
     Active Substance: DEFERASIROX
     Indication: BLOOD IRON INCREASED
     Dosage: UNK
     Route: 048
     Dates: start: 201408
  6. SOLU-CORTEF [Concomitant]
     Active Substance: HYDROCORTISONE SODIUM SUCCINATE
     Indication: PROPHYLAXIS
     Dosage: 50 MG, PRN
     Route: 042
     Dates: start: 20130403
  7. BENADRYL [Concomitant]
     Active Substance: DIPHENHYDRAMINE HYDROCHLORIDE
     Indication: PROPHYLAXIS
     Dosage: 50 MG, PRN
     Route: 042
     Dates: start: 20130403
  8. ATIVAN [Concomitant]
     Active Substance: LORAZEPAM
     Indication: ANXIOLYTIC THERAPY
  9. DEFEROXAMINE [Concomitant]
     Active Substance: DEFEROXAMINE\DEFEROXAMINE MESYLATE
     Indication: BLOOD IRON INCREASED
     Route: 058
  10. HYDROMORPHONE [Concomitant]
     Active Substance: HYDROMORPHONE
     Indication: PAIN
     Dosage: 2 MG, PRN
     Route: 048
     Dates: start: 20130408
  11. SOLIRIS [Suspect]
     Active Substance: ECULIZUMAB
     Indication: PAROXYSMAL NOCTURNAL HAEMOGLOBINURIA
     Dosage: 600 MG, QW
     Route: 042
     Dates: start: 20130408, end: 20130502
  12. GRAVOL [Concomitant]
     Active Substance: DIMENHYDRINATE
     Indication: PROPHYLAXIS
     Dosage: 50 MG, PRN
     Route: 042
     Dates: start: 20130402

REACTIONS (1)
  - Haemoglobin decreased [Unknown]

NARRATIVE: CASE EVENT DATE: 2016
